FAERS Safety Report 5720509-8 (Version None)
Quarter: 2008Q2

REPORT INFORMATION
  Report Type: 
  Country: None (occurrence: None)
  Receive Date: 20080423
  Receipt Date: 20080124
  Transmission Date: 20081010
  Serious: Yes (Other)
  Sender: FDA-Public Use
  Company Number: 254915

PATIENT
  Age: 46 Year

DRUGS (4)
  1. AVASTIN [Suspect]
     Indication: RECTAL CANCER
  2. LEUCOVORIN CALCIUM [Concomitant]
  3. FLUOROURACIL [Concomitant]
  4. OXALIPLATIN [Concomitant]

REACTIONS (1)
  - COLONIC FISTULA [None]
